FAERS Safety Report 23981255 (Version 1)
Quarter: 2024Q2

REPORT INFORMATION
  Report Type: Spontaneous
  Country: US (occurrence: None)
  Receive Date: 20240614
  Receipt Date: 20240614
  Transmission Date: 20240716
  Serious: Yes (Other)
  Sender: FDA-Public Use
  Company Number: None

PATIENT
  Age: 9 Year
  Sex: Male
  Weight: 25.9 kg

DRUGS (1)
  1. HUMIRA [Suspect]
     Active Substance: ADALIMUMAB
     Indication: Colitis ulcerative
     Dosage: 20 NMG EVERY 2 WEEKS SUBCUTANEOUS
     Route: 058
     Dates: start: 20201001

REACTIONS (5)
  - Rash [None]
  - Rash [None]
  - Rash [None]
  - Rash [None]
  - Diarrhoea [None]

NARRATIVE: CASE EVENT DATE: 20240530
